FAERS Safety Report 7967164-4 (Version None)
Quarter: 2011Q4

REPORT INFORMATION
  Report Type: 
  Country: None (occurrence: None)
  Receive Date: 20111208
  Receipt Date: 20111208
  Transmission Date: 20120403
  Serious: Yes (Other)
  Sender: FDA-Public Use
  Company Number: None

PATIENT
  Sex: Female
  Weight: 73.9363 kg

DRUGS (1)
  1. EFFEXOR [Suspect]
     Indication: DYSTHYMIC DISORDER
     Dosage: 75 MG PO AM X 7 DAYS THEN PO BID
     Route: 048
     Dates: start: 20111108, end: 20111121

REACTIONS (2)
  - VOMITING [None]
  - NAUSEA [None]
